FAERS Safety Report 18389673 (Version 1)
Quarter: 2020Q4

REPORT INFORMATION
  Report Type: Spontaneous
  Country: FR (occurrence: FR)
  Receive Date: 20201015
  Receipt Date: 20201015
  Transmission Date: 20210114
  Serious: Yes (Hospitalization)
  Sender: FDA-Public Use
  Company Number: FR-ELI_LILLY_AND_COMPANY-FR202010001556

PATIENT
  Age: 51 Year
  Sex: Female
  Weight: 44.9 kg

DRUGS (27)
  1. SPASFON [PHLOROGLUCINOL] [Concomitant]
     Active Substance: PHLOROGLUCINOL
     Indication: NAUSEA
     Dosage: UNK UNK, UNKNOWN
  2. ASPARAGINASE [Concomitant]
     Active Substance: ASPARAGINASE
     Dosage: 75 IU/KILOGRAM
     Route: 041
     Dates: start: 20191114
  3. PLITICAN [Concomitant]
     Active Substance: ALIZAPRIDE HYDROCHLORIDE
     Indication: PROPHYLAXIS
     Dosage: UNK, UNKNOWN
  4. ASPARAGINASE [Concomitant]
     Active Substance: ASPARAGINASE
     Indication: DUCTAL ADENOCARCINOMA OF PANCREAS
     Dosage: 100 IU/KILOGRAM
     Route: 041
     Dates: start: 20190926, end: 20191030
  5. SOLUPRED [PREDNISOLONE] [Concomitant]
     Active Substance: PREDNISOLONE
     Indication: PAIN
     Dosage: 40 MILLIGRAM
     Route: 048
     Dates: start: 20191031, end: 20191102
  6. ESIDREX [Concomitant]
     Active Substance: HYDROCHLOROTHIAZIDE
     Indication: ASCITES
     Dosage: UNK, UNKNOWN
  7. ESIDREX [Concomitant]
     Active Substance: HYDROCHLOROTHIAZIDE
     Indication: OEDEMA
     Dosage: 50 MILLIGRAM
     Route: 048
     Dates: start: 20191030, end: 20191105
  8. GEMCITABINE HYDROCHLORIDE. [Suspect]
     Active Substance: GEMCITABINE HYDROCHLORIDE
     Indication: DUCTAL ADENOCARCINOMA OF PANCREAS
     Dosage: 1000 MILLIGRAM/SQ. METER
     Route: 042
     Dates: start: 20190926, end: 20191106
  9. PLITICAN [Concomitant]
     Active Substance: ALIZAPRIDE HYDROCHLORIDE
     Indication: VOMITING
     Dosage: UNK, UNKNOWN
  10. VOGALENE [Concomitant]
     Active Substance: METOPIMAZINE
     Indication: VOMITING
     Dosage: UNK UNK, UNKNOWN
  11. BICARBONATE [Concomitant]
     Active Substance: SODIUM BICARBONATE
     Indication: PROPHYLAXIS
     Dosage: 3 DOSAGE FORM, DAILY
     Route: 065
     Dates: start: 20190926
  12. ABRAXANE [Suspect]
     Active Substance: PACLITAXEL
     Indication: DUCTAL ADENOCARCINOMA OF PANCREAS
     Dosage: 125 MILLIGRAM/SQ. METER
     Route: 042
     Dates: start: 20190926, end: 20191106
  13. GEMCITABINE HYDROCHLORIDE. [Suspect]
     Active Substance: GEMCITABINE HYDROCHLORIDE
     Indication: PRODUCT USED FOR UNKNOWN INDICATION
     Dosage: 800 MILLIGRAM/SQ. METER
     Route: 042
     Dates: start: 20191114
  14. SOLUPRED [PREDNISOLONE] [Concomitant]
     Active Substance: PREDNISOLONE
     Indication: NAUSEA
     Dosage: UNK UNK, UNKNOWN
  15. ACTISKENAN [Concomitant]
     Active Substance: MORPHINE SULFATE
     Indication: ABDOMINAL PAIN
     Dosage: 10 MG, UNKNOWN
     Route: 048
     Dates: start: 20191029
  16. INEXIUM [ESOMEPRAZOLE SODIUM] [Concomitant]
     Active Substance: ESOMEPRAZOLE SODIUM
     Indication: ABDOMINAL PAIN UPPER
     Dosage: 40 MILLIGRAM
     Route: 042
     Dates: start: 20191024, end: 20191105
  17. SPASFON [PHLOROGLUCINOL] [Concomitant]
     Active Substance: PHLOROGLUCINOL
     Indication: ABDOMINAL PAIN
     Dosage: 80 MILLIGRAM
     Route: 042
     Dates: start: 20191024, end: 20191105
  18. VOGALENE [Concomitant]
     Active Substance: METOPIMAZINE
     Indication: PROPHYLAXIS
     Dosage: UNK UNK, UNKNOWN
  19. INEXIUM [ESOMEPRAZOLE SODIUM] [Concomitant]
     Active Substance: ESOMEPRAZOLE SODIUM
     Dosage: 400 MILLIGRAM
     Route: 042
     Dates: start: 20191004
  20. ABRAXANE [Suspect]
     Active Substance: PACLITAXEL
     Indication: PRODUCT USED FOR UNKNOWN INDICATION
     Dosage: 100 MILLIGRAM/SQ. METER
     Route: 042
     Dates: start: 20191114
  21. DOLIPRANE [Concomitant]
     Active Substance: ACETAMINOPHEN
     Indication: ABDOMINAL PAIN
     Dosage: 1 G, UNKNOWN
     Route: 048
     Dates: start: 20190921
  22. PLITICAN [Concomitant]
     Active Substance: ALIZAPRIDE HYDROCHLORIDE
     Indication: NAUSEA
     Dosage: 200 MILLIGRAM
     Route: 042
     Dates: start: 20191024, end: 20191105
  23. HYDROCHLOROTHIAZIDE. [Concomitant]
     Active Substance: HYDROCHLOROTHIAZIDE
     Indication: PRODUCT USED FOR UNKNOWN INDICATION
     Dosage: UNK, UNKNOWN
     Route: 065
  24. VOGALENE [Concomitant]
     Active Substance: METOPIMAZINE
     Indication: NAUSEA
     Dosage: 22.5 MILLIGRAM
     Route: 048
     Dates: start: 20191009
  25. DUROGESIC [Concomitant]
     Active Substance: FENTANYL
     Indication: ABDOMINAL PAIN
     Dosage: 25 UG, UNKNOWN
     Route: 003
     Dates: start: 20190921
  26. ZOPHREN [ONDANSETRON] [Concomitant]
     Active Substance: ONDANSETRON
     Indication: PROPHYLAXIS OF NAUSEA AND VOMITING
     Dosage: 16 MILLIGRAM
     Route: 048
     Dates: start: 20191030, end: 20191105
  27. SOLUPRED [PREDNISOLONE] [Concomitant]
     Active Substance: PREDNISOLONE
     Indication: ASTHENIA
     Dosage: 40 MILLIGRAM
     Route: 048
     Dates: start: 20190912

REACTIONS (2)
  - Off label use [Unknown]
  - Hypokalaemia [Recovered/Resolved]

NARRATIVE: CASE EVENT DATE: 20191112
